FAERS Safety Report 6600564-3 (Version None)
Quarter: 2010Q1

REPORT INFORMATION
  Report Type: 
  Country: None (occurrence: None)
  Receive Date: 20100224
  Receipt Date: 20100218
  Transmission Date: 20100710
  Serious: Yes (Life-Threatening, Hospitalization, Other)
  Sender: FDA-Public Use
  Company Number: JP-WYE-H10805709

PATIENT
  Sex: Male

DRUGS (16)
  1. ANCARON [Suspect]
     Indication: VENTRICULAR TACHYCARDIA
     Route: 048
     Dates: start: 20050701, end: 20080924
  2. ANCARON [Suspect]
     Route: 048
     Dates: start: 20090525, end: 20090609
  3. ANCARON [Suspect]
     Route: 048
     Dates: start: 20090610
  4. RENIVACE [Concomitant]
     Indication: CARDIAC FAILURE CHRONIC
     Route: 048
     Dates: start: 20050701
  5. WARFARIN SODIUM [Concomitant]
     Indication: CARDIAC ANEURYSM
     Route: 048
     Dates: start: 19940701
  6. ITOROL [Concomitant]
     Indication: ANGINA PECTORIS
     Route: 048
     Dates: start: 20011001
  7. ALOSITOL [Concomitant]
     Indication: HYPERURICAEMIA
     Route: 048
     Dates: start: 20050701
  8. FERROMIA [Concomitant]
     Dosage: DOSE UNKNOWN
     Route: 065
     Dates: start: 20090524
  9. HUMULIN 70/30 [Concomitant]
     Indication: DIABETES MELLITUS
     Dosage: 18 IU TO 61 IU
     Route: 058
     Dates: start: 20011026
  10. PLAVIX [Concomitant]
     Indication: STENT PLACEMENT
     Route: 048
     Dates: start: 20090529
  11. ASPIRIN [Concomitant]
     Indication: STENT PLACEMENT
     Route: 048
     Dates: start: 20090529
  12. ACARDI [Concomitant]
     Dosage: DOSE UNKNOWN
     Route: 065
     Dates: start: 20090616
  13. MARZULENE S [Concomitant]
     Dosage: DOSE UNKNOWN
     Route: 065
     Dates: start: 20050718
  14. ARTIST [Concomitant]
     Dosage: DOSE UNKNOWN
     Route: 065
     Dates: start: 20090521
  15. LASIX [Concomitant]
     Indication: CARDIAC FAILURE CHRONIC
     Route: 048
     Dates: start: 19940901
  16. SIGMART [Concomitant]
     Indication: ANGINA PECTORIS
     Route: 048
     Dates: start: 19940913

REACTIONS (5)
  - ANAEMIA [None]
  - CARDIAC FAILURE CHRONIC [None]
  - CONDITION AGGRAVATED [None]
  - HEPATIC FUNCTION ABNORMAL [None]
  - HYPOGLYCAEMIA [None]
